FAERS Safety Report 8369812-6 (Version None)
Quarter: 2012Q1

REPORT INFORMATION
  Report Type: 
  Country: None (occurrence: None)
  Receive Date: 20120323
  Receipt Date: 20110301
  Transmission Date: 20120608
  Serious: Yes (Other)
  Sender: FDA-Public Use
  Company Number: 163-21880-11012234

PATIENT
  Age: 89 Year
  Sex: Male

DRUGS (12)
  1. VICODIN [Concomitant]
  2. LISINOPRIL [Concomitant]
  3. SPIRONOLACTONE [Concomitant]
  4. CARVEDILOL [Concomitant]
  5. ALPHAGAN [Concomitant]
  6. SLOW FE (FERROUS SULFATE) [Concomitant]
  7. TIMOLOL MALEATE [Concomitant]
  8. ASPIRIN [Concomitant]
  9. REVLIMID [Suspect]
     Indication: MULTIPLE MYELOMA
     Dosage: 25 MG, DAILY X 14 Q 21 DAYS, PO
     Route: 048
     Dates: start: 20100506
  10. DEXAMETHASONE [Concomitant]
  11. TRAVATAN [Concomitant]
  12. VITAMIN D [Concomitant]

REACTIONS (3)
  - INGUINAL HERNIA [None]
  - CONSTIPATION [None]
  - ANAEMIA [None]
